FAERS Safety Report 6202185-3 (Version None)
Quarter: 2009Q2

REPORT INFORMATION
  Report Type: 
  Country: None (occurrence: None)
  Receive Date: 20090526
  Receipt Date: 20090514
  Transmission Date: 20091009
  Serious: Yes (Other)
  Sender: FDA-Public Use
  Company Number: US-PFIZER INC-2005103597

PATIENT
  Sex: Female
  Weight: 57 kg

DRUGS (7)
  1. PROVERA [Suspect]
     Indication: HORMONE REPLACEMENT THERAPY
     Dosage: UNK
     Route: 048
     Dates: start: 19790101, end: 19950101
  2. PROVERA [Suspect]
     Indication: MENOPAUSAL SYMPTOMS
  3. PREMARIN [Suspect]
     Indication: HORMONE REPLACEMENT THERAPY
     Dates: start: 19790101, end: 19980101
  4. PREMARIN [Suspect]
     Indication: MENOPAUSAL SYMPTOMS
  5. MEDROXYPROGESTERONE ACETATE [Suspect]
     Indication: MENOPAUSAL SYMPTOMS
     Dosage: UNK
     Dates: start: 19920101, end: 19980101
  6. LOPID [Concomitant]
     Indication: ILL-DEFINED DISORDER
     Dosage: UNK
     Dates: start: 19800101
  7. GEMFIBROZIL [Concomitant]
     Indication: ILL-DEFINED DISORDER
     Dosage: UNK
     Dates: start: 19800101

REACTIONS (3)
  - BREAST CANCER [None]
  - HYPOAESTHESIA [None]
  - PARAESTHESIA [None]
